FAERS Safety Report 19139582 (Version 1)
Quarter: 2021Q2

REPORT INFORMATION
  Report Type: Report from Study
  Country: CN (occurrence: CN)
  Receive Date: 20210415
  Receipt Date: 20210415
  Transmission Date: 20210717
  Serious: Yes (Other)
  Sender: FDA-Public Use
  Company Number: CN-JNJFOC-20210413893

PATIENT

DRUGS (2)
  1. HALDOL DECANOAS [Suspect]
     Active Substance: HALOPERIDOL DECANOATE
     Indication: PSYCHOTIC DISORDER
     Route: 065
  2. RISPERDAL [Suspect]
     Active Substance: RISPERIDONE
     Indication: PSYCHOTIC DISORDER
     Route: 065

REACTIONS (15)
  - Dizziness [Unknown]
  - Diarrhoea [Unknown]
  - Blood glucose increased [Unknown]
  - Papule [Unknown]
  - Bradycardia [Unknown]
  - Nausea [Unknown]
  - Pruritus [Unknown]
  - Constipation [Unknown]
  - Sinus tachycardia [Unknown]
  - Orthostatic hypotension [Unknown]
  - Somnolence [Unknown]
  - Vomiting [Unknown]
  - Extrapyramidal disorder [Unknown]
  - Vision blurred [Unknown]
  - Menstrual disorder [Unknown]
